FAERS Safety Report 14585356 (Version 2)
Quarter: 2018Q1

REPORT INFORMATION
  Report Type: Spontaneous
  Country: GB (occurrence: GB)
  Receive Date: 20180301
  Receipt Date: 20180323
  Transmission Date: 20180509
  Serious: Yes (Congenital Anomaly, Other)
  Sender: FDA-Public Use
  Company Number: GB-LUPIN (EUROPE) LIMITED-2018-01078

PATIENT
  Sex: Male
  Weight: 3.23 kg

DRUGS (3)
  1. ABACAVIR AND LAMIVUDINE [Suspect]
     Active Substance: ABACAVIR SULFATE\LAMIVUDINE
     Indication: HIV INFECTION
     Dosage: 1 DF, QD
     Route: 064
  2. PREZCOBIX [Suspect]
     Active Substance: COBICISTAT\DARUNAVIR ETHANOLATE
     Indication: HIV INFECTION
     Dosage: 1 DF, QD
     Route: 064
  3. PREGNACARE                         /02357101/ [Concomitant]
     Indication: VITAMIN SUPPLEMENTATION
     Dosage: UNK
     Route: 064

REACTIONS (3)
  - Foetal exposure during pregnancy [Unknown]
  - Amniotic band syndrome [Not Recovered/Not Resolved]
  - Limb reduction defect [Not Recovered/Not Resolved]
